FAERS Safety Report 16436630 (Version 1)
Quarter: 2019Q2

REPORT INFORMATION
  Report Type: Spontaneous
  Country: US (occurrence: US)
  Receive Date: 20190614
  Receipt Date: 20190614
  Transmission Date: 20190711
  Serious: No
  Sender: FDA-Public Use
  Company Number: US-JNJFOC-20170215108

PATIENT
  Age: 5 Year
  Sex: Male
  Weight: 18.14 kg

DRUGS (2)
  1. CHILDRENS MOTRIN [Concomitant]
     Active Substance: IBUPROFEN
     Indication: PYREXIA
     Dosage: DOSE: 2 TABLESPOON/ONCE.
     Route: 065
  2. CHILDRENS TYLENOL [Suspect]
     Active Substance: ACETAMINOPHEN
     Indication: PYREXIA
     Dosage: DOSE: 2 TEASPOONS BY ENCLOSED DOSING CUP
     Route: 048
     Dates: start: 20170210, end: 20170211

REACTIONS (1)
  - Drug ineffective [Unknown]
